FAERS Safety Report 11390810 (Version 1)
Quarter: 2015Q3

REPORT INFORMATION
  Report Type: Report from Study
  Country: CA (occurrence: CA)
  Receive Date: 20150818
  Receipt Date: 20150818
  Transmission Date: 20151125
  Serious: Yes (Death, Hospitalization)
  Sender: FDA-Public Use
  Company Number: PHHY2015CA050074

PATIENT
  Age: 53 Year
  Sex: Male

DRUGS (2)
  1. SANDOSTATIN LAR DEPOT [Suspect]
     Active Substance: OCTREOTIDE ACETATE
     Indication: PANCREATIC NEOPLASM
     Dosage: 20 MG, ONCE A MONTH
     Route: 030
     Dates: start: 20150427
  2. SANDOSTATIN [Suspect]
     Active Substance: OCTREOTIDE ACETATE
     Indication: PANCREATIC NEOPLASM
     Dosage: 150 UG, Q8H EVERY 8 HOURS (CONT 2 WEEKS POST 1ST LAR)
     Route: 058
     Dates: start: 201503, end: 201505

REACTIONS (9)
  - Pain [Unknown]
  - Malaise [Unknown]
  - Starvation [Unknown]
  - Weight decreased [Unknown]
  - Vomiting [Unknown]
  - Death [Fatal]
  - Confusional state [Unknown]
  - Decreased appetite [Unknown]
  - Fear of eating [Unknown]

NARRATIVE: CASE EVENT DATE: 20150523
